FAERS Safety Report 8550366 (Version 3)
Quarter: 2012Q4

REPORT INFORMATION
  Report Type: 
  Country: US (occurrence: US)
  Receive Date: 20120507
  Receipt Date: 20121212
  Transmission Date: 20130627
  Serious: Yes (Death, Hospitalization, Other)
  Sender: FDA-Public Use
  Company Number: US-AMGEN-USASP2012005201

PATIENT
  Age: 57 Year
  Sex: Male
  Weight: 125 kg

DRUGS (19)
  1. PROCRIT [Suspect]
     Indication: ANAEMIA
     Dosage: UNK
     Dates: start: 20060422
  2. AVANDIA [Concomitant]
     Dosage: 8 mg, qd
     Route: 048
  3. BENAZEPRIL [Concomitant]
     Indication: HYPERTENSION
     Dosage: 20 mg, bid
     Route: 048
  4. LASIX                              /00032601/ [Concomitant]
     Dosage: 80 mg, qd
     Route: 048
  5. NORVASC [Concomitant]
     Indication: HYPERTENSION
     Dosage: 10 mg, qd
     Route: 048
  6. SKELAXIN                           /00611501/ [Concomitant]
     Dosage: 800 mg, bid
     Route: 048
  7. NASONEX [Concomitant]
     Dosage: 50 mug, UNK
  8. TRICOR                             /00090101/ [Concomitant]
     Dosage: 160 mg, qd
     Route: 048
  9. ZOCOR [Concomitant]
     Dosage: 40 mg, qd
     Route: 048
  10. DURAGESIC                          /00070401/ [Concomitant]
     Dosage: UNK
     Dates: end: 20060414
  11. LOTENSIN                           /00498401/ [Concomitant]
     Dosage: 20 mg, qd
     Route: 048
  12. LIPITOR [Concomitant]
     Dosage: 10 mg, qd
     Route: 048
  13. K-DUR [Concomitant]
     Dosage: 20 mEq, qd
  14. INSULIN [Concomitant]
     Dosage: UNK
  15. CLARITIN                           /00413701/ [Concomitant]
     Indication: HYPERSENSITIVITY
     Dosage: 10 mg, 1 prn
  16. ASPIRIN [Concomitant]
     Dosage: 325 mg, UNK
  17. FUROSEMIDE [Concomitant]
     Dosage: 40 mg, UNK
  18. POTASSIUM [Concomitant]
     Dosage: 10 mg, qd
     Route: 048
  19. CLARINEX                           /01202601/ [Concomitant]
     Dosage: UNK

REACTIONS (9)
  - Lumbar vertebral fracture [Fatal]
  - Circulatory collapse [Fatal]
  - Rib fracture [Fatal]
  - Deep vein thrombosis [Fatal]
  - Fall [Fatal]
  - Pulmonary embolism [Fatal]
  - Pneumonia [Unknown]
  - Pleural effusion [Unknown]
  - Blood homocysteine increased [Unknown]
